FAERS Safety Report 9649426 (Version 1)
Quarter: 2013Q4

REPORT INFORMATION
  Report Type: Spontaneous
  Country: US (occurrence: US)
  Receive Date: 20131028
  Receipt Date: 20131028
  Transmission Date: 20140711
  Serious: Yes (Other)
  Sender: FDA-Public Use
  Company Number: US-PFIZER INC-2013307307

PATIENT
  Age: 35 Year
  Sex: Female
  Weight: 87.98 kg

DRUGS (1)
  1. LYRICA [Suspect]
     Indication: FIBROMYALGIA
     Dosage: 150 MG, 2X/DAY
     Route: 048
     Dates: start: 2009

REACTIONS (2)
  - Spinal compression fracture [Unknown]
  - Intervertebral disc protrusion [Unknown]
